FAERS Safety Report 4994437-X (Version None)
Quarter: 2006Q2

REPORT INFORMATION
  Report Type: 
  Country: None (occurrence: None)
  Receive Date: 20060503
  Receipt Date: 20060420
  Transmission Date: 20061013
  Serious: Yes (Other)
  Sender: FDA-Public Use
  Company Number: 2006053290

PATIENT
  Sex: Female

DRUGS (3)
  1. CLINDAMYCIN PHOSPHATE [Suspect]
     Indication: ACNE
     Dosage: TOPICAL
     Route: 061
     Dates: start: 20041202, end: 20050105
  2. ZOVIRAX [Suspect]
     Indication: ACNE
     Dosage: (AS NECESSARY), TOPICAL
     Route: 061
     Dates: start: 20041202, end: 20050105
  3. ERYAKNEN (ERYTHROMYCIN) [Suspect]
     Indication: ACNE
     Dosage: (EVERY DAY), TOPICAL
     Route: 061
     Dates: start: 20041202, end: 20050105

REACTIONS (2)
  - DRUG EXPOSURE DURING PREGNANCY [None]
  - FOETAL GROWTH RETARDATION [None]
